FAERS Safety Report 4471768-3 (Version None)
Quarter: 2004Q4

REPORT INFORMATION
  Report Type: 
  Country: None (occurrence: None)
  Receive Date: 20041006
  Receipt Date: 20040927
  Transmission Date: 20050328
  Serious: Yes (Hospitalization)
  Sender: FDA-Public Use
  Company Number: 2004235074FR

PATIENT
  Age: 81 Year
  Sex: Male

DRUGS (13)
  1. ALDALIX (SPIRONOLACTONE, FUROSEMIDE) TABLET [Suspect]
     Dosage: 50 MG/20, ORAL
     Route: 048
     Dates: end: 20040728
  2. DELTASONE [Suspect]
     Dosage: 20 MG, ORAL
     Route: 048
  3. OMEPRAZOLE [Suspect]
     Dosage: 40 MG, DAILY, ORAL
     Route: 048
     Dates: end: 20040812
  4. DIETHYLSTILBESTROL [Suspect]
     Dosage: 1 DF, TID, ORAL
     Route: 048
     Dates: start: 20040704
  5. CLOPIDOGREL BISULFATE [Suspect]
     Dosage: 1 DF, DAILY, ORAL
     Route: 048
     Dates: start: 20040515, end: 20040801
  6. CYPROHEPTADINE HCL [Suspect]
     Dosage: 1 DF, BID, ORAL
     Route: 048
     Dates: start: 20040729, end: 20040812
  7. NEXIUM [Concomitant]
  8. DISTILBENE (DIETHYLSTILBESTROL) [Concomitant]
  9. PERIACTIN [Concomitant]
  10. CORTANCYL [Concomitant]
  11. ACETAMINOPHEN [Concomitant]
  12. CETORNAN (ORNITHINE OXOGLURATE) [Concomitant]
  13. PLAVIX [Concomitant]

REACTIONS (9)
  - ANAEMIA [None]
  - BLOOD FIBRINOGEN DECREASED [None]
  - GENERAL PHYSICAL HEALTH DETERIORATION [None]
  - METASTASES TO BONE MARROW [None]
  - ORAL CANDIDIASIS [None]
  - PETECHIAE [None]
  - THROMBOCYTOPENIC PURPURA [None]
  - WEIGHT DECREASED [None]
  - WHITE BLOOD CELL COUNT DECREASED [None]
